FAERS Safety Report 12932532 (Version 1)
Quarter: 2016Q4

REPORT INFORMATION
  Report Type: Spontaneous
  Country: CZ (occurrence: CZ)
  Receive Date: 20161111
  Receipt Date: 20161111
  Transmission Date: 20170207
  Serious: Yes (Other)
  Sender: FDA-Public Use
  Company Number: CZ-ROCHE-1853529

PATIENT
  Age: 29 Year
  Sex: Female

DRUGS (6)
  1. ACTILYSE [Suspect]
     Active Substance: ALTEPLASE
     Indication: INTRACARDIAC THROMBUS
     Dosage: INITIAL 10MG, FOLLOWED BY A CONTINUOUS INFUSION OF 3 MG/H (0.06 MG/KG/H); IN 2 HOURS, DOSE WAS TITRA
     Route: 065
  2. HEPARIN [Concomitant]
     Active Substance: HEPARIN SODIUM
     Indication: INTRACARDIAC THROMBUS
     Dosage: EVERY 12 HOURS
     Route: 065
  3. ENOXAPARIN [Concomitant]
     Active Substance: ENOXAPARIN
     Indication: INTRACARDIAC THROMBUS
     Dosage: EVERY 12 HOURS
     Route: 058
  4. ACTILYSE [Suspect]
     Active Substance: ALTEPLASE
     Dosage: 3 MG/H (0.06 MG/KG/H)
     Route: 065
  5. ACTILYSE [Suspect]
     Active Substance: ALTEPLASE
     Dosage: 5 MG/H (0.1 MG/KG/H)
     Route: 065
  6. WARFARIN [Concomitant]
     Active Substance: WARFARIN

REACTIONS (8)
  - Postpartum haemorrhage [Unknown]
  - Cerebral ischaemia [Unknown]
  - Abdominal pain [Recovered/Resolved]
  - Renal embolism [Recovered/Resolved]
  - Hemiparesis [Recovered/Resolved]
  - Maternal exposure during pregnancy [Unknown]
  - Dysarthria [Recovered/Resolved]
  - Epistaxis [Recovered/Resolved]
